FAERS Safety Report 16358827 (Version 1)
Quarter: 2019Q2

REPORT INFORMATION
  Report Type: Spontaneous
  Country: ES (occurrence: ES)
  Receive Date: 20190527
  Receipt Date: 20190527
  Transmission Date: 20190711
  Serious: Yes (Other)
  Sender: FDA-Public Use
  Company Number: ES-TEVA-2019-ES-1054831

PATIENT
  Age: 79 Year
  Sex: Male
  Weight: 78.2 kg

DRUGS (7)
  1. SIMVASTATINA 20 MG / 28 COMPRIMIDOS [Concomitant]
     Dosage: 20 MILLIGRAM DAILY; 1 COMPRESSED EVERYDAY
     Route: 065
     Dates: start: 20151109
  2. A.A.S. 100MG 30 COMPRIMIDOS [Concomitant]
     Dosage: 100 MILLIGRAM DAILY; 1 TABLET EACH DAY
     Route: 065
     Dates: start: 20140902
  3. LORMETAZEPAM 1 MG / 30 COMPRIMIDOS [Concomitant]
     Dosage: 1 MILLIGRAM DAILY;  1 COMPRESSED EVERYDAY
     Route: 065
     Dates: start: 20131010
  4. XERISTAR 60MG 28 CAPSULAS DURAS GASTRORRESISTENTES [Concomitant]
     Dosage: 60 MILLIGRAM DAILY; 1 CAPSULE EVERYDAY
     Route: 065
     Dates: start: 20070221
  5. ENALAPRIL 10 MG / 28 COMPRIMIDOS [Suspect]
     Active Substance: ENALAPRIL
     Indication: ESSENTIAL HYPERTENSION
     Route: 065
     Dates: start: 20111006, end: 20190326
  6. OMEPRAZOL 20 MG / 28 CAPSULAS [Concomitant]
     Dosage: 20 MILLIGRAM DAILY; 1 CAPSULE EVERYDAY
     Route: 065
     Dates: start: 20120530
  7. ICANDRA 50/850MG 60 COMPRIMIDOS RECUB PELIC [Concomitant]
     Dosage: 1 COMPRESSED EVERY 12 HOURS
     Route: 065
     Dates: start: 20121024

REACTIONS (6)
  - Pallor [Recovered/Resolved]
  - Disorientation [Recovered/Resolved]
  - Hyperkalaemia [Recovered/Resolved]
  - Hyperhidrosis [Recovered/Resolved]
  - Nausea [Recovered/Resolved]
  - Vomiting [Recovered/Resolved]

NARRATIVE: CASE EVENT DATE: 20190312
